FAERS Safety Report 7171307-2 (Version None)
Quarter: 2010Q4

REPORT INFORMATION
  Report Type: 
  Country: None (occurrence: None)
  Receive Date: 20101217
  Receipt Date: 20101210
  Transmission Date: 20110411
  Serious: Yes (Other)
  Sender: FDA-Public Use
  Company Number: US-ABBOTT-10P-163-0690855-00

PATIENT
  Sex: Female
  Weight: 72.64 kg

DRUGS (3)
  1. HUMIRA [Suspect]
     Indication: RHEUMATOID ARTHRITIS
     Route: 048
     Dates: start: 20090101
  2. MIRALAX [Suspect]
     Indication: COLONOSCOPY
     Route: 048
     Dates: start: 20101020, end: 20101020
  3. GAS-X [Concomitant]
     Indication: COLONOSCOPY
     Route: 048
     Dates: start: 20101020, end: 20101020

REACTIONS (8)
  - BLOOD PRESSURE DECREASED [None]
  - DEHYDRATION [None]
  - DEVICE MALFUNCTION [None]
  - INJECTION SITE HAEMATOMA [None]
  - INJECTION SITE PAIN [None]
  - POLYP [None]
  - RENAL FUNCTION TEST ABNORMAL [None]
  - VOMITING [None]
